FAERS Safety Report 5075689-7 (Version None)
Quarter: 2006Q3

REPORT INFORMATION
  Report Type: 
  Country: None (occurrence: None)
  Receive Date: 20060803
  Receipt Date: 20060803
  Transmission Date: 20061208
  Serious: No
  Sender: FDA-Public Use
  Company Number: None

PATIENT
  Age: 65 Year
  Sex: Female
  Weight: 96.1626 kg

DRUGS (1)
  1. PERSANTINE [Suspect]
     Indication: CEREBRAL INFARCTION
     Dosage: TID PO
     Route: 048
     Dates: start: 19901201, end: 19991201

REACTIONS (3)
  - DIZZINESS [None]
  - NAUSEA [None]
  - VOMITING [None]
